FAERS Safety Report 5832748-6 (Version None)
Quarter: 2008Q3

REPORT INFORMATION
  Report Type: 
  Country: None (occurrence: None)
  Receive Date: 20080804
  Receipt Date: 20080730
  Transmission Date: 20090109
  Serious: Yes (Death, Hospitalization)
  Sender: FDA-Public Use
  Company Number: PHHY2008JP16252

PATIENT
  Age: 17 Year

DRUGS (6)
  1. TEGRETOL [Suspect]
     Indication: EPILEPSY
     Dosage: 400 MG
  2. PHENYTOIN [Concomitant]
     Indication: EPILEPSY
     Dosage: 250 MG
  3. VALPROATE SODIUM [Concomitant]
     Indication: EPILEPSY
     Dosage: 400 MG
  4. LITHIUM CARBONATE [Concomitant]
  5. LITHIUM CARBONATE [Concomitant]
     Indication: DYSTHYMIC DISORDER
  6. ORYZANOL [Concomitant]
     Indication: DYSTHYMIC DISORDER

REACTIONS (2)
  - CONDITION AGGRAVATED [None]
  - LONG QT SYNDROME [None]
